FAERS Safety Report 5127619-7 (Version None)
Quarter: 2006Q4

REPORT INFORMATION
  Report Type: 
  Country: None (occurrence: None)
  Receive Date: 20061011
  Receipt Date: 20060927
  Transmission Date: 20070319
  Serious: Yes (Other)
  Sender: FDA-Public Use
  Company Number: 2006RR-03940

PATIENT
  Age: 74 Year
  Sex: Female
  Weight: 69 kg

DRUGS (9)
  1. SIMVASTATIN [Suspect]
     Indication: BLOOD CHOLESTEROL INCREASED
     Dosage: 10 MG, QD, ORAL
     Route: 048
     Dates: start: 20050511, end: 20050824
  2. CALCIUM/VITAMIN D3                 (VITAMIN D3, CALCIUM CARBONATE) [Concomitant]
  3. FOLIC ACID [Concomitant]
  4. FUROSEMIDE [Concomitant]
  5. INDOMETHACIN [Concomitant]
  6. LOSARTAN POTASSIUM    (LOSARTIUM POTASSIUM) [Concomitant]
  7. METHOTREXATE SODIUM [Concomitant]
  8. PREDNISOLONE [Concomitant]
  9. TEMAZEPAM [Concomitant]

REACTIONS (1)
  - CYSTITIS PSEUDOMONAL [None]
